FAERS Safety Report 23891669 (Version 1)
Quarter: 2024Q2

REPORT INFORMATION
  Report Type: Spontaneous
  Country: CA (occurrence: CA)
  Receive Date: 20240524
  Receipt Date: 20240524
  Transmission Date: 20240716
  Serious: Yes (Hospitalization, Other)
  Sender: FDA-Public Use
  Company Number: CA-BBU-2024000080

PATIENT
  Age: 63 Year
  Sex: Male

DRUGS (5)
  1. TOCILIZUMAB [Suspect]
     Active Substance: TOCILIZUMAB
     Indication: COVID-19
  2. METHYLPREDNISOLONE [Suspect]
     Active Substance: METHYLPREDNISOLONE
     Indication: COVID-19
     Dosage: FOR 5 DAYS
     Route: 042
  3. METHYLPREDNISOLONE [Suspect]
     Active Substance: METHYLPREDNISOLONE
     Indication: COVID-19
     Route: 042
  4. CEFTRIAXONE [Suspect]
     Active Substance: CEFTRIAXONE\CEFTRIAXONE SODIUM
     Indication: COVID-19
  5. PREDNISONE [Suspect]
     Active Substance: PREDNISONE
     Indication: COVID-19
     Dosage: HIGH DOSE, 30-50 MG DAILY
     Route: 048

REACTIONS (8)
  - Staphylococcal infection [Unknown]
  - Infectious pleural effusion [Unknown]
  - Deep vein thrombosis [Unknown]
  - Pseudomonal bacteraemia [Unknown]
  - Urinary tract infection [Unknown]
  - Oesophageal candidiasis [Unknown]
  - Candida endophthalmitis [Recovering/Resolving]
  - Off label use [Unknown]
